FAERS Safety Report 16541717 (Version 1)
Quarter: 2019Q3

REPORT INFORMATION
  Report Type: Spontaneous
  Country: AU (occurrence: AU)
  Receive Date: 20190708
  Receipt Date: 20190708
  Transmission Date: 20191004
  Serious: Yes (Other)
  Sender: FDA-Public Use
  Company Number: AU-BAYER-2019-122492

PATIENT

DRUGS (2)
  1. STIVARGA [Suspect]
     Active Substance: REGORAFENIB
     Indication: CHILD-PUGH-TURCOTTE SCORE INCREASED
     Dosage: UNK
  2. SORAFENIB (RAF KINASE INHIBITOR) [Suspect]
     Active Substance: SORAFENIB
     Indication: CHILD-PUGH-TURCOTTE SCORE INCREASED
     Dosage: UNK

REACTIONS (6)
  - Malignant neoplasm progression [None]
  - Nausea [None]
  - Product use in unapproved indication [None]
  - Alpha 1 foetoprotein increased [None]
  - Paraesthesia [None]
  - Off label use [None]
